FAERS Safety Report 8864595 (Version 1)
Quarter: 2012Q4

REPORT INFORMATION
  Report Type: 
  Country: US (occurrence: US)
  Receive Date: 20121024
  Receipt Date: 20121024
  Transmission Date: 20130627
  Serious: No
  Sender: FDA-Public Use
  Company Number: US-AMGEN-USASP2011068522

PATIENT
  Age: 71 Year
  Sex: Female

DRUGS (1)
  1. ENBREL [Suspect]
     Indication: RHEUMATOID ARTHRITIS
     Dosage: 50 mg, qwk
     Dates: start: 20080924

REACTIONS (6)
  - Visual acuity reduced [Unknown]
  - Hypoaesthesia [Unknown]
  - Ingrowing nail [Recovered/Resolved]
  - Asthenopia [Unknown]
  - Tooth infection [Recovered/Resolved]
  - Rheumatoid arthritis [Not Recovered/Not Resolved]
